FAERS Safety Report 8973442 (Version 1)
Quarter: 2012Q4

REPORT INFORMATION
  Report Type: 
  Country: US (occurrence: US)
  Receive Date: 20121218
  Receipt Date: 20121218
  Transmission Date: 20130627
  Serious: No
  Sender: FDA-Public Use
  Company Number: US-BRISTOL-MYERS SQUIBB COMPANY-16788580

PATIENT
  Age: 56 Year
  Sex: Female
  Weight: 50 kg

DRUGS (3)
  1. ABILIFY TABS [Suspect]
     Indication: BIPOLAR DISORDER
     Dosage: Sample week
     Route: 048
  2. ABILIFY TABS [Suspect]
     Indication: ANXIETY
     Dosage: Sample week
     Route: 048
  3. ABILIFY TABS [Suspect]
     Indication: DEPRESSION
     Dosage: Sample week
     Route: 048

REACTIONS (5)
  - Myalgia [Recovered/Resolved]
  - Dizziness [Recovered/Resolved]
  - Feeling abnormal [Recovered/Resolved]
  - Fatigue [Recovered/Resolved]
  - Disturbance in attention [Recovered/Resolved]
